FAERS Safety Report 19469109 (Version 5)
Quarter: 2022Q4

REPORT INFORMATION
  Report Type: Report from Study
  Country: FR (occurrence: FR)
  Receive Date: 20210628
  Receipt Date: 20221121
  Transmission Date: 20230113
  Serious: Yes (Other)
  Sender: FDA-Public Use
  Company Number: FR-BRISTOL-MYERS SQUIBB COMPANY-BMS-2021-061038

PATIENT
  Age: 69 Year
  Sex: Female
  Weight: 63 kg

DRUGS (6)
  1. IPILIMUMAB [Suspect]
     Active Substance: IPILIMUMAB
     Indication: Colorectal cancer
     Route: 042
     Dates: start: 20210503
  2. FLUOROURACIL [Suspect]
     Active Substance: FLUOROURACIL
     Indication: Colorectal cancer
     Dosage: MOST RECENT DOSE ON 29-MAR-2021
     Route: 040
     Dates: start: 20201110
  3. FLUOROURACIL [Suspect]
     Active Substance: FLUOROURACIL
     Route: 042
     Dates: start: 20201110, end: 20201112
  4. LEUCOVORIN [Suspect]
     Active Substance: LEUCOVORIN
     Indication: Colorectal cancer
     Dosage: ON 10-NOV-2020 - 684 MG?ON 29-MAR-2021 -  DOSE CHANGED 250 MG
     Route: 042
     Dates: start: 20201110
  5. IRINOTECAN HYDROCHLORIDE [Suspect]
     Active Substance: IRINOTECAN HYDROCHLORIDE
     Indication: Colorectal cancer
     Dosage: ON 10-NOV-2020 - 308 MG?ON 29-MAR-2021 - DOSAGE WAS CHANGED TO 252 MG
     Route: 042
     Dates: start: 20201110
  6. BEVACIZUMAB [Suspect]
     Active Substance: BEVACIZUMAB
     Indication: Colorectal cancer
     Dosage: ON 10-NOV-2020 - 315 MG?ON 29-MAR-2021 - DOSE CHANGED TO 305 MG
     Route: 042
     Dates: start: 20201110

REACTIONS (1)
  - Diplopia [Not Recovered/Not Resolved]

NARRATIVE: CASE EVENT DATE: 20210531
